FAERS Safety Report 16766327 (Version 4)
Quarter: 2020Q3

REPORT INFORMATION
  Report Type: Spontaneous
  Country: US (occurrence: US)
  Receive Date: 20190903
  Receipt Date: 20200904
  Transmission Date: 20201102
  Serious: Yes (Other)
  Sender: FDA-Public Use
  Company Number: US-GILEAD-2019-0425758

PATIENT
  Age: 54 Year
  Sex: Male

DRUGS (4)
  1. TRUVADA [Suspect]
     Active Substance: EMTRICITABINE\TENOFOVIR DISOPROXIL FUMARATE
     Indication: HIV INFECTION
     Dosage: UNK
     Route: 048
     Dates: start: 2015, end: 2016
  2. GENVOYA [Concomitant]
     Active Substance: COBICISTAT\ELVITEGRAVIR\EMTRICITABINE\TENOFOVIR ALAFENAMIDE FUMARATE
  3. ATRIPLA [Suspect]
     Active Substance: EFAVIRENZ\EMTRICITABINE\TENOFOVIR DISOPROXIL FUMARATE
     Indication: HIV INFECTION
     Dosage: UNK
     Route: 048
     Dates: start: 2010, end: 2014
  4. STRIBILD [Suspect]
     Active Substance: COBICISTAT\ELVITEGRAVIR\EMTRICITABINE\TENOFOVIR DISOPROXIL FUMARATE
     Indication: HIV INFECTION
     Dosage: UNK
     Route: 048
     Dates: start: 2014, end: 2015

REACTIONS (15)
  - Osteoporosis [Not Recovered/Not Resolved]
  - Tooth loss [Unknown]
  - Pain [Unknown]
  - Emotional distress [Unknown]
  - Fracture [Recovered/Resolved]
  - Economic problem [Unknown]
  - Upper limb fracture [Recovered/Resolved]
  - Knee arthroplasty [Unknown]
  - Shoulder operation [Recovered/Resolved]
  - Bone loss [Not Recovered/Not Resolved]
  - Anxiety [Unknown]
  - Bone density decreased [Unknown]
  - Anhedonia [Unknown]
  - Lower limb fracture [Recovered/Resolved]
  - Shoulder operation [Recovered/Resolved]

NARRATIVE: CASE EVENT DATE: 201512
